FAERS Safety Report 8831220 (Version 1)
Quarter: 2012Q4

REPORT INFORMATION
  Report Type: 
  Country: US (occurrence: US)
  Receive Date: 20121008
  Receipt Date: 20121008
  Transmission Date: 20130627
  Serious: No
  Sender: FDA-Public Use
  Company Number: US-009507513-1210USA002525

PATIENT
  Sex: Female

DRUGS (2)
  1. DULERA [Suspect]
     Indication: ASTHMA
     Dosage: UNK
     Route: 055
  2. VENTOLIN HFA [Concomitant]

REACTIONS (3)
  - Product quality issue [Unknown]
  - Drug dose omission [Unknown]
  - Drug ineffective [Unknown]
